FAERS Safety Report 9182174 (Version 4)
Quarter: 2015Q2

REPORT INFORMATION
  Report Type: Report from Study
  Country: BR (occurrence: BR)
  Receive Date: 20121030
  Receipt Date: 20150424
  Transmission Date: 20150821
  Serious: Yes (Other)
  Sender: FDA-Public Use
  Company Number: PHHY2012BR096533

PATIENT
  Sex: Male
  Weight: 120 kg

DRUGS (6)
  1. DIOVAN [Suspect]
     Active Substance: VALSARTAN
     Indication: HYPERTENSION
  2. AAS [Concomitant]
     Active Substance: ASPIRIN
     Indication: CARDIOVASCULAR DISORDER
     Dosage: 2 DF (100 MG), AT LUNCH
     Route: 048
     Dates: end: 20121130
  3. DIOVAN AMLO FIX [Suspect]
     Active Substance: AMLODIPINE\VALSARTAN
     Dosage: 1 DF, (320MG VALS/5MG AMLO) IN THE MORNING
     Route: 048
  4. DIOVAN [Suspect]
     Active Substance: VALSARTAN
     Indication: BLOOD PRESSURE ABNORMAL
     Dosage: 160 MG, 1 TABLET IN THE MORNING
  5. FLUTAMIDE. [Concomitant]
     Active Substance: FLUTAMIDE
     Indication: PROSTATE CANCER
     Dosage: 3 DF (250 MG), A DAY
     Route: 048
  6. DIOVAN AMLO FIX [Suspect]
     Active Substance: AMLODIPINE\VALSARTAN
     Indication: HYPERTENSION
     Dosage: 1 DF, (160MG VALS/5MG AMLO) UKN
     Route: 048

REACTIONS (4)
  - Anxiety [Recovered/Resolved]
  - Diabetes mellitus [Recovering/Resolving]
  - Blood pressure inadequately controlled [Recovered/Resolved]
  - Tension [Recovered/Resolved]
